FAERS Safety Report 7473902-X (Version None)
Quarter: 2011Q2

REPORT INFORMATION
  Report Type: 
  Country: None (occurrence: None)
  Receive Date: 20110511
  Receipt Date: 20110405
  Transmission Date: 20111010
  Serious: Yes (Hospitalization)
  Sender: FDA-Public Use
  Company Number: US-BAYER-201024821NA

PATIENT
  Age: 27 Year
  Sex: Female
  Weight: 90 kg

DRUGS (21)
  1. DOXYCYCLINE HYCLATE [Concomitant]
     Route: 065
  2. OXYCODONE HCL [Concomitant]
     Route: 065
  3. METRONIDAZOLE [Concomitant]
     Route: 065
  4. YAZ [Suspect]
     Indication: CONTRACEPTION
  5. BETAMETHASONE [Concomitant]
     Route: 065
  6. IBUPROFEN [Concomitant]
     Route: 048
  7. YASMIN [Suspect]
     Indication: ORAL CONTRACEPTION
     Dosage: USE: 2007 60 OCT-2009. DISCREPANCY IN MEDICAL RECORDS: YASMIN SEP-2009. PRESCRIPTION: 20-OCT-2009
     Route: 048
  8. CEFDINIR [Concomitant]
     Dosage: 300 MG, BID
     Route: 065
     Dates: start: 20091025
  9. FERROUS SULFATE TAB [Concomitant]
     Route: 065
  10. LORTAB [Concomitant]
  11. DROSPIRENONE AND ETHINYL ESTRADIOL [Suspect]
     Indication: PRODUCT USED FOR UNKNOWN INDICATION
     Dosage: USE 2000-2010. DISCREPANCY IN MEDICAL RECORDS: JUL-08 TO -AUG-09 (OR 2000-2010).
     Route: 048
  12. TRIMETHOPRIM [Concomitant]
     Route: 065
  13. FAMCICLOVIR [Concomitant]
     Route: 065
  14. ZOVIRAX [Concomitant]
     Route: 065
  15. TERCONAZOLE [Concomitant]
     Route: 048
  16. FLUCONAZOLE [Concomitant]
     Route: 065
  17. VALTREX [Concomitant]
     Route: 048
  18. MELPHALAN HYDROCHLORIDE [Concomitant]
     Route: 065
  19. TRIAMCINOLONE [Concomitant]
     Route: 065
  20. AMOXICILLIN [Concomitant]
     Route: 065
  21. YAZ [Suspect]
     Indication: ACNE
     Dosage: USED IN 2007. DISCREPANCY IN MEDICAL RECORDS: OCT-2009.
     Route: 048

REACTIONS (10)
  - PULMONARY EMBOLISM [None]
  - CHEST PAIN [None]
  - PRODUCTIVE COUGH [None]
  - DYSPNOEA [None]
  - MUSCULOSKELETAL PAIN [None]
  - NECK PAIN [None]
  - BLOOD IRON DECREASED [None]
  - INJURY [None]
  - NORMOCHROMIC NORMOCYTIC ANAEMIA [None]
  - PULMONARY INFARCTION [None]
